FAERS Safety Report 11752269 (Version 1)
Quarter: 2015Q4

REPORT INFORMATION
  Report Type: Spontaneous
  Country: AU (occurrence: AU)
  Receive Date: 20151118
  Receipt Date: 20151118
  Transmission Date: 20160304
  Serious: Yes (Other)
  Sender: FDA-Public Use
  Company Number: AU-ABBVIE-15P-008-1503439-00

PATIENT
  Age: 26 Year
  Sex: Female

DRUGS (3)
  1. EPILIM [Suspect]
     Active Substance: VALPROATE SODIUM
     Route: 065
  2. KEPPRA [Suspect]
     Active Substance: LEVETIRACETAM
     Indication: PRODUCT USED FOR UNKNOWN INDICATION
     Route: 065
  3. EPILIM [Suspect]
     Active Substance: VALPROATE SODIUM
     Indication: PRODUCT USED FOR UNKNOWN INDICATION
     Route: 065

REACTIONS (4)
  - Seizure [Unknown]
  - Irritability [Unknown]
  - Diarrhoea [Unknown]
  - Wrong technique in product usage process [Unknown]
